FAERS Safety Report 19392312 (Version 1)
Quarter: 2021Q2

REPORT INFORMATION
  Report Type: Spontaneous
  Country: US (occurrence: US)
  Receive Date: 20210608
  Receipt Date: 20210608
  Transmission Date: 20210717
  Serious: No
  Sender: FDA-Public Use
  Company Number: US-MAYNE PHARMA-2021MYN000154

PATIENT
  Age: 54 Year
  Sex: Female

DRUGS (1)
  1. DORYX MPC [Suspect]
     Active Substance: DOXYCYCLINE HYCLATE
     Indication: ACNE
     Dosage: 120 MG AS DIRECTED
     Route: 048

REACTIONS (1)
  - Immunosuppression [Unknown]
